FAERS Safety Report 8160802-5 (Version None)
Quarter: 2012Q1

REPORT INFORMATION
  Report Type: 
  Country: None (occurrence: None)
  Receive Date: 20120223
  Receipt Date: 20120216
  Transmission Date: 20120608
  Serious: Yes (Other)
  Sender: FDA-Public Use
  Company Number: PHHY2012BE013800

PATIENT

DRUGS (1)
  1. ZOMETA [Suspect]

REACTIONS (2)
  - ORBITAL OEDEMA [None]
  - EXOPHTHALMOS [None]
